FAERS Safety Report 7412811-9 (Version None)
Quarter: 2011Q2

REPORT INFORMATION
  Report Type: 
  Country: None (occurrence: None)
  Receive Date: 20110413
  Receipt Date: 20110405
  Transmission Date: 20111010
  Serious: Yes (Death)
  Sender: FDA-Public Use
  Company Number: B0703929A

PATIENT
  Sex: Female
  Weight: 70 kg

DRUGS (1)
  1. RELENZA [Suspect]
     Indication: H1N1 INFLUENZA
     Dosage: 600MG TWICE PER DAY
     Route: 042
     Dates: start: 20110125, end: 20110130

REACTIONS (1)
  - PULMONARY EMBOLISM [None]
